FAERS Safety Report 6735959-0 (Version None)
Quarter: 2010Q2

REPORT INFORMATION
  Report Type: 
  Country: None (occurrence: None)
  Receive Date: 20100521
  Receipt Date: 20100521
  Transmission Date: 20101027
  Serious: Yes (Death, Hospitalization)
  Sender: FDA-Public Use
  Company Number: B0653349A

PATIENT
  Age: 5 Year
  Sex: Male

DRUGS (1)
  1. ONDANSETRON [Suspect]
     Indication: VOMITING
     Route: 060

REACTIONS (9)
  - BRONCHOPNEUMONIA [None]
  - CARDIAC ARREST [None]
  - DRUG INEFFECTIVE [None]
  - ENTEROVIRUS INFECTION [None]
  - HYPERTHERMIA MALIGNANT [None]
  - LYMPHADENOPATHY [None]
  - MUSCLE RIGIDITY [None]
  - THROMBOSIS [None]
  - VENTRICULAR TACHYCARDIA [None]
